FAERS Safety Report 22163978 (Version 1)
Quarter: 2023Q2

REPORT INFORMATION
  Report Type: Spontaneous
  Country: US (occurrence: US)
  Receive Date: 20230402
  Receipt Date: 20230402
  Transmission Date: 20230721
  Serious: No
  Sender: FDA-Public Use
  Company Number: US-SA-SAC20230329000055

PATIENT
  Sex: Male

DRUGS (3)
  1. DUPIXENT [Suspect]
     Active Substance: DUPILUMAB
     Indication: Dermatitis atopic
     Dosage: UNK
  2. EUCRISA [Suspect]
     Active Substance: CRISABOROLE
     Dosage: 60 G, APPLY 10 AFFECTED AREA
     Route: 061
  3. CIBINQO [Suspect]
     Active Substance: ABROCITINIB
     Dosage: 1 DF, QD, FOR 30 DAYS
     Route: 048

REACTIONS (4)
  - Exfoliative rash [Unknown]
  - Skin discolouration [Unknown]
  - Dermatitis atopic [Unknown]
  - Treatment failure [Unknown]
